FAERS Safety Report 21338019 (Version 1)
Quarter: 2022Q3

REPORT INFORMATION
  Report Type: Spontaneous
  Country: US (occurrence: US)
  Receive Date: 20220915
  Receipt Date: 20220915
  Transmission Date: 20221027
  Serious: Yes (Hospitalization)
  Sender: FDA-Public Use
  Company Number: US-UROGEN PHARMA LTD.-2022-UGN-000101

PATIENT

DRUGS (4)
  1. JELMYTO [Suspect]
     Active Substance: MITOMYCIN
     Indication: Transitional cell cancer of the renal pelvis and ureter
     Dosage: 1 MILLIGRAM, ONE TIME PER WEEK (INSTILLATION)
     Dates: start: 20220811, end: 20220811
  2. JELMYTO [Suspect]
     Active Substance: MITOMYCIN
     Dosage: 1 MILLIGRAM, ONE TIME PER WEEK (INSTILLATION)
     Dates: start: 20220818, end: 20220818
  3. JELMYTO [Suspect]
     Active Substance: MITOMYCIN
     Dosage: 1 MILLIGRAM, ONE TIME PER WEEK (INSTILLATION)
     Dates: start: 20220825, end: 20220825
  4. JELMYTO [Suspect]
     Active Substance: MITOMYCIN
     Dosage: 1 MILLIGRAM, ONE TIME PER WEEK (INSTILLATION)
     Dates: start: 20220901, end: 20220901

REACTIONS (1)
  - Cardiac disorder [Not Recovered/Not Resolved]

NARRATIVE: CASE EVENT DATE: 20220101
